FAERS Safety Report 5485415-5 (Version None)
Quarter: 2007Q4

REPORT INFORMATION
  Report Type: 
  Country: None (occurrence: None)
  Receive Date: 20071015
  Receipt Date: 20071002
  Transmission Date: 20080405
  Serious: Yes (Other)
  Sender: FDA-Public Use
  Company Number: US-KINGPHARMUSA00001-K200701276

PATIENT

DRUGS (1)
  1. SKELAXIN [Suspect]

REACTIONS (1)
  - HYPOTENSION [None]
